FAERS Safety Report 14328607 (Version 2)
Quarter: 2018Q1

REPORT INFORMATION
  Report Type: Spontaneous
  Country: DE (occurrence: DE)
  Receive Date: 20171227
  Receipt Date: 20180130
  Transmission Date: 20180509
  Serious: Yes (Hospitalization, Other)
  Sender: FDA-Public Use
  Company Number: PHHY2017DE187859

PATIENT
  Sex: Female

DRUGS (1)
  1. VITALUX PLUS [Suspect]
     Active Substance: VITAMINS
     Indication: DRY AGE-RELATED MACULAR DEGENERATION
     Dosage: UNK
     Route: 048
     Dates: start: 2015

REACTIONS (9)
  - Fall [Unknown]
  - Disease progression [Not Recovered/Not Resolved]
  - Head injury [Unknown]
  - Pain [Unknown]
  - Arthropathy [Unknown]
  - Brain injury [Unknown]
  - Age-related macular degeneration [Not Recovered/Not Resolved]
  - Nasopharyngitis [Unknown]
  - Visual impairment [Not Recovered/Not Resolved]

NARRATIVE: CASE EVENT DATE: 2016
